FAERS Safety Report 4592747-1 (Version None)
Quarter: 2005Q1

REPORT INFORMATION
  Report Type: 
  Country: None (occurrence: None)
  Receive Date: 20050222
  Receipt Date: 20050207
  Transmission Date: 20050727
  Serious: Yes (Death, Hospitalization, Other)
  Sender: FDA-Public Use
  Company Number: 2005025185

PATIENT
  Age: 72 Year
  Sex: Female

DRUGS (2)
  1. BEXTRA [Suspect]
     Indication: LUMBAR SPINAL STENOSIS
     Dosage: 20 MG (20 MG , 1 IN 1 D), ORAL
     Route: 048
     Dates: start: 20030901
  2. ANTIPHYPERTENSIVES (ANTIPHYPERTENSIVES) [Concomitant]

REACTIONS (5)
  - CARDIAC FAILURE [None]
  - CEREBRAL INFARCTION [None]
  - DYSPHAGIA [None]
  - RESPIRATORY FAILURE [None]
  - SINUS BRADYCARDIA [None]
